FAERS Safety Report 5606952-6 (Version None)
Quarter: 2008Q1

REPORT INFORMATION
  Report Type: 
  Country: None (occurrence: None)
  Receive Date: 20080129
  Receipt Date: 20080122
  Transmission Date: 20080703
  Serious: Yes (Other)
  Sender: FDA-Public Use
  Company Number: US-GILEAD-2008-0015071

PATIENT
  Sex: Female
  Weight: 91.254 kg

DRUGS (7)
  1. LETAIRIS [Suspect]
     Indication: PULMONARY HYPERTENSION
     Route: 048
     Dates: start: 20070903
  2. REVATIO [Concomitant]
     Indication: PULMONARY HYPERTENSION
     Route: 048
  3. VENTAVIS [Concomitant]
     Indication: PULMONARY HYPERTENSION
     Dosage: 6-9 X DAY
     Route: 055
  4. SPIRONOLACTONE [Concomitant]
     Indication: PULMONARY HYPERTENSION
     Route: 048
  5. LASIX [Concomitant]
     Indication: PULMONARY HYPERTENSION
     Route: 048
  6. DIGITEK [Concomitant]
     Indication: ESSENTIAL HYPERTENSION
     Route: 048
  7. POTASSIUM CHLORIDE [Concomitant]
     Indication: SUPPLEMENTATION THERAPY
     Route: 048

REACTIONS (3)
  - HEADACHE [None]
  - HOT FLUSH [None]
  - TACHYCARDIA [None]
